FAERS Safety Report 15286120 (Version 1)
Quarter: 2018Q3

REPORT INFORMATION
  Report Type: Spontaneous
  Country: US (occurrence: US)
  Receive Date: 20180802
  Receipt Date: 20180802
  Transmission Date: 20181010
  Serious: Yes (Hospitalization)
  Sender: FDA-Public Use
  Company Number: None

PATIENT
  Sex: Female

DRUGS (1)
  1. TREMFYA [Suspect]
     Active Substance: GUSELKUMAB
     Indication: PSORIASIS
     Dosage: ?          OTHER FREQUENCY:WK 4, THEN Q 8 WKS;?
     Route: 058
     Dates: start: 20180531

REACTIONS (3)
  - Hepatic steatosis [None]
  - Therapy cessation [None]
  - Cholecystectomy [None]
